FAERS Safety Report 16256668 (Version 1)
Quarter: 2019Q2

REPORT INFORMATION
  Report Type: Spontaneous
  Country: FR (occurrence: FR)
  Receive Date: 20190430
  Receipt Date: 20190430
  Transmission Date: 20190711
  Serious: Yes (Hospitalization)
  Sender: FDA-Public Use
  Company Number: FR-MYLANLABS-2019M1040329

PATIENT
  Age: 33 Year
  Sex: Female
  Weight: 49 kg

DRUGS (2)
  1. TRAMADOL. [Suspect]
     Active Substance: TRAMADOL
     Indication: ARTHRALGIA
     Dosage: VARIABLE
     Route: 048
     Dates: start: 20180911, end: 20181030
  2. TRAMADOL. [Suspect]
     Active Substance: TRAMADOL
     Dosage: 200 MILLIGRAM, QD
     Route: 048
     Dates: start: 20180911, end: 20181030

REACTIONS (4)
  - Disorientation [Unknown]
  - Seizure [Recovered/Resolved]
  - Speech disorder [Unknown]
  - Loss of consciousness [Recovered/Resolved]

NARRATIVE: CASE EVENT DATE: 20181030
